FAERS Safety Report 21389835 (Version 1)
Quarter: 2022Q3

REPORT INFORMATION
  Report Type: Spontaneous
  Country: AF (occurrence: AF)
  Receive Date: 20220929
  Receipt Date: 20220929
  Transmission Date: 20221026
  Serious: Yes (Life-Threatening, Hospitalization, Other)
  Sender: FDA-Public Use
  Company Number: BE-BAXTER-2022BAX019456

PATIENT
  Age: 31 Year
  Sex: Male
  Weight: 44 kg

DRUGS (7)
  1. DEXTROSE MONOHYDRATE [Suspect]
     Active Substance: DEXTROSE MONOHYDRATE
     Indication: Renal injury
     Dosage: 1000 MILLILTER (ML) ONCE DAILY
     Route: 042
     Dates: start: 20220628, end: 20220628
  2. DEXTROSE MONOHYDRATE [Suspect]
     Active Substance: DEXTROSE MONOHYDRATE
     Indication: Drug-induced liver injury
  3. BEDAQUILINE [Concomitant]
     Active Substance: BEDAQUILINE
     Indication: Tuberculosis
     Dosage: 200 MILLIGRAM (MG) THREE TIMES A WEEK
     Route: 048
     Dates: start: 20211222, end: 202206
  4. CLOFAZIMINE [Concomitant]
     Active Substance: CLOFAZIMINE
     Indication: Tuberculosis
     Dosage: 100 MILLIGRAM (MG) ONCE DAILY
     Route: 048
     Dates: start: 20211222, end: 202206
  5. PYRAZINAMIDE [Concomitant]
     Active Substance: PYRAZINAMIDE
     Indication: Tuberculosis
     Dosage: 1600 MILLIGRAM (MG) ONCE DAILY (36MG/KG)
     Route: 048
     Dates: start: 20211222, end: 202206
  6. DELAMANID [Concomitant]
     Active Substance: DELAMANID
     Indication: Tuberculosis
     Dosage: 100 MILLIGRAM TWICE DAILY
     Route: 048
     Dates: start: 20211222, end: 202206
  7. LINEZOLID [Concomitant]
     Active Substance: LINEZOLID
     Indication: Tuberculosis
     Dosage: 600 MILLIGRAM ONCE DAILY
     Route: 048
     Dates: start: 20211222, end: 202206

REACTIONS (3)
  - Anaphylactoid reaction [Recovered/Resolved]
  - Chills [Recovered/Resolved]
  - Pyrexia [Recovered/Resolved]

NARRATIVE: CASE EVENT DATE: 20220628
